FAERS Safety Report 14057846 (Version 8)
Quarter: 2018Q3

REPORT INFORMATION
  Report Type: Report from Study
  Country: CR (occurrence: CR)
  Receive Date: 20171006
  Receipt Date: 20180919
  Transmission Date: 20181010
  Serious: Yes (Other)
  Sender: FDA-Public Use
  Company Number: PHHY2017CR141689

PATIENT
  Age: 66 Year
  Sex: Male
  Weight: 88 kg

DRUGS (3)
  1. TELMISARTAN AND AMLODIPINE [Concomitant]
     Active Substance: AMLODIPINE BESYLATE\TELMISARTAN
     Indication: PRODUCT USED FOR UNKNOWN INDICATION
     Dosage: 1 DF, QD
     Route: 048
  2. TASIGNA [Suspect]
     Active Substance: NILOTINIB
     Indication: CHRONIC MYELOID LEUKAEMIA
     Dosage: 200 MG, BID
     Route: 048
     Dates: start: 20170831, end: 201803
  3. GLIVEC [Suspect]
     Active Substance: IMATINIB MESYLATE
     Indication: PRODUCT USED FOR UNKNOWN INDICATION
     Dosage: UNK
     Route: 065
     Dates: end: 201804

REACTIONS (16)
  - Platelet count decreased [Recovered/Resolved]
  - Platelet disorder [Unknown]
  - Muscle atrophy [Unknown]
  - Rash [Unknown]
  - Haemoglobin decreased [Recovering/Resolving]
  - Hypersensitivity [Unknown]
  - Fatigue [Unknown]
  - Red blood cell count decreased [Recovered/Resolved]
  - White blood cell count increased [Unknown]
  - Weight decreased [Recovering/Resolving]
  - Cytogenetic analysis abnormal [Unknown]
  - Drug ineffective [Unknown]
  - Blast cell count increased [Recovered/Resolved]
  - White blood cell count decreased [Recovered/Resolved]
  - Pruritus [Unknown]
  - Platelet count increased [Unknown]

NARRATIVE: CASE EVENT DATE: 20171208
